FAERS Safety Report 18325944 (Version 1)
Quarter: 2020Q3

REPORT INFORMATION
  Report Type: Spontaneous
  Country: US (occurrence: US)
  Receive Date: 20200929
  Receipt Date: 20200929
  Transmission Date: 20201103
  Serious: No
  Sender: FDA-Public Use
  Company Number: US-PFIZER INC-2020373340

PATIENT
  Age: 36 Year
  Sex: Male
  Weight: 90.72 kg

DRUGS (1)
  1. EUCRISA [Suspect]
     Active Substance: CRISABOROLE
     Indication: ECZEMA
     Dosage: UNK (EXTREMELY SMALL AMOUNT RUBBED TO BOTH EYELIDS)
     Dates: start: 20200922, end: 20200922

REACTIONS (3)
  - Prescription drug used without a prescription [Recovered/Resolved with Sequelae]
  - Intentional product misuse [Recovered/Resolved with Sequelae]
  - Application site pain [Unknown]

NARRATIVE: CASE EVENT DATE: 20200922
